FAERS Safety Report 25125913 (Version 1)
Quarter: 2025Q1

REPORT INFORMATION
  Report Type: Spontaneous
  Country: CA (occurrence: CA)
  Receive Date: 20250326
  Receipt Date: 20250326
  Transmission Date: 20250409
  Serious: Yes (Other)
  Sender: MERCK SHARP & DOHME LLC
  Company Number: CA-009507513-2267710

PATIENT
  Age: 67 Year
  Sex: Male
  Weight: 81 kg

DRUGS (5)
  1. SITAGLIPTIN L-MALATE [Suspect]
     Active Substance: SITAGLIPTIN L-MALATE
     Indication: Diabetes mellitus
     Route: 048
  2. DIOVAN [Concomitant]
     Active Substance: VALSARTAN
  3. ROSUVASTATIN [Concomitant]
     Active Substance: ROSUVASTATIN
  4. SYNJARDY [Concomitant]
     Active Substance: EMPAGLIFLOZIN\METFORMIN HYDROCHLORIDE
  5. TENOFOVIR [Concomitant]
     Active Substance: TENOFOVIR

REACTIONS (3)
  - Drug ineffective [Recovered/Resolved]
  - Product substitution issue [Unknown]
  - Nausea [Recovered/Resolved]
